FAERS Safety Report 8941911 (Version 4)
Quarter: 2013Q1

REPORT INFORMATION
  Report Type: Spontaneous
  Country: US (occurrence: US)
  Receive Date: 20121130
  Receipt Date: 20130108
  Transmission Date: 20140127
  Serious: No
  Sender: FDA-Public Use
  Company Number: US-VERTEX PHARMACEUTICAL INC.-2012-025199

PATIENT
  Age: 51 Year
  Sex: Female
  Weight: 73 kg

DRUGS (9)
  1. INCIVEK [Suspect]
     Indication: HEPATITIS C
     Dosage: 750 MG, TID
     Route: 048
     Dates: start: 20121117
  2. RIBAVIRIN [Suspect]
     Indication: HEPATITIS C
     Dosage: 600 MG AM, 400 MG PM
     Route: 048
     Dates: start: 20121117
  3. PEGASYS [Suspect]
     Indication: HEPATITIS C
     Dosage: 180 ?G, QW
     Route: 058
     Dates: start: 20121117
  4. BENADRYL                           /00000402/ [Concomitant]
     Dosage: 25 MG, QD
     Route: 048
  5. ADVIL                              /00044201/ [Concomitant]
     Indication: PAIN
     Dosage: UNK, PRN
     Route: 048
  6. AQUAPHOR                           /00298701/ [Concomitant]
     Indication: PRURITUS
     Dosage: UNK
     Route: 061
  7. AQUAPHOR                           /00298701/ [Concomitant]
     Indication: RASH
  8. HYDROXYZINE [Concomitant]
     Indication: PRURITUS
     Dosage: UNK, PRN
     Route: 048
  9. ZOLOFT [Concomitant]
     Indication: DEPRESSION
     Dosage: UNK, QD
     Route: 048

REACTIONS (9)
  - Inappropriate schedule of drug administration [Unknown]
  - Dyspnoea [Not Recovered/Not Resolved]
  - Depression [Not Recovered/Not Resolved]
  - Nervousness [Unknown]
  - Vision blurred [Not Recovered/Not Resolved]
  - Asthenia [Unknown]
  - Loss of consciousness [Unknown]
  - Rash erythematous [Not Recovered/Not Resolved]
  - Anaemia [Not Recovered/Not Resolved]
